FAERS Safety Report 21343872 (Version 1)
Quarter: 2022Q3

REPORT INFORMATION
  Report Type: Spontaneous
  Country: US (occurrence: US)
  Receive Date: 20220916
  Receipt Date: 20220916
  Transmission Date: 20221027
  Serious: Yes (Other)
  Sender: FDA-Public Use
  Company Number: US-SA-SAC20220915000569

PATIENT
  Sex: Male

DRUGS (1)
  1. ZANTAC [Suspect]
     Active Substance: RANITIDINE HYDROCHLORIDE
     Dosage: PRESCRIPTION ZANTAC FROM APPROXIMATELY 1982 TO 1987 OVER THE COUNTER ZANTAC FROM APPROXIMATELY 1982
     Route: 065
     Dates: start: 1982, end: 1987

REACTIONS (1)
  - Prostate cancer [Unknown]
